FAERS Safety Report 12833323 (Version 1)
Quarter: 2016Q4

REPORT INFORMATION
  Report Type: Spontaneous
  Country: US (occurrence: US)
  Receive Date: 20161010
  Receipt Date: 20161010
  Transmission Date: 20170207
  Serious: No
  Sender: FDA-Public Use
  Company Number: US-AMNEAL PHARMACEUTICALS-2016AMN00339

PATIENT
  Sex: Female
  Weight: 77.55 kg

DRUGS (1)
  1. DICLOFENAC SODIUM. [Suspect]
     Active Substance: DICLOFENAC SODIUM
     Indication: ARTHRALGIA
     Dosage: 4GMS TO KNEE TOPICALLY
     Route: 048
     Dates: start: 20160703, end: 20160703

REACTIONS (1)
  - Drug ineffective [Not Recovered/Not Resolved]
